FAERS Safety Report 15963666 (Version 1)
Quarter: 2019Q1

REPORT INFORMATION
  Report Type: Spontaneous
  Country: US (occurrence: US)
  Receive Date: 20190214
  Receipt Date: 20190214
  Transmission Date: 20190417
  Serious: No
  Sender: FDA-Public Use
  Company Number: US-COLLEGIUM PHARMACEUTICAL, INC.-2019CGM00035

PATIENT
  Age: 31 Year
  Sex: Female
  Weight: 43.54 kg

DRUGS (15)
  1. BIOTIN [Concomitant]
     Active Substance: BIOTIN
  2. DETOX TEA [Concomitant]
  3. VITAMIN B12 [Concomitant]
     Active Substance: CYANOCOBALAMIN
  4. SOMA [Concomitant]
     Active Substance: CARISOPRODOL
  5. XTAMPZA ER [Suspect]
     Active Substance: OXYCODONE
     Indication: LUMBAR SPINAL STENOSIS
     Dosage: 9 MG, 1X/DAY
     Route: 048
  6. DEPO [Concomitant]
     Active Substance: UNSPECIFIED INGREDIENT
  7. DEPO-MEDROL [Concomitant]
     Active Substance: METHYLPREDNISOLONE ACETATE
  8. PERCOCET [Concomitant]
     Active Substance: ACETAMINOPHEN\OXYCODONE HYDROCHLORIDE
  9. VITAMIN E [Concomitant]
     Active Substance: .ALPHA.-TOCOPHEROL
  10. VITAMIN C [Concomitant]
     Active Substance: ASCORBIC ACID
  11. XTAMPZA ER [Suspect]
     Active Substance: OXYCODONE
     Indication: LUMBAR SPINAL STENOSIS
     Dosage: 27 MG, 1 TO 2 TIMES A DAY
     Route: 048
     Dates: start: 201712, end: 20190119
  12. XTAMPZA ER [Suspect]
     Active Substance: OXYCODONE
     Indication: INTERVERTEBRAL DISC PROTRUSION
     Dosage: UNK
  13. MULTIVITAMIN [Concomitant]
     Active Substance: VITAMINS
  14. XTAMPZA ER [Suspect]
     Active Substance: OXYCODONE
     Indication: INTERVERTEBRAL DISC PROTRUSION
     Dosage: 9 MG, EVERY 48 HOURS
  15. FLEXERIL [Concomitant]
     Active Substance: CYCLOBENZAPRINE HYDROCHLORIDE

REACTIONS (10)
  - Gait disturbance [Unknown]
  - Alopecia [Not Recovered/Not Resolved]
  - Abdominal pain [Recovered/Resolved]
  - Adnexa uteri mass [Not Recovered/Not Resolved]
  - Lymphadenopathy [Unknown]
  - Musculoskeletal pain [Unknown]
  - Pain [Unknown]
  - Menstrual disorder [Unknown]
  - Dizziness [Not Recovered/Not Resolved]
  - Groin pain [Not Recovered/Not Resolved]

NARRATIVE: CASE EVENT DATE: 201803
